FAERS Safety Report 23428750 (Version 1)
Quarter: 2024Q1

REPORT INFORMATION
  Report Type: Spontaneous
  Country: US (occurrence: US)
  Receive Date: 20240122
  Receipt Date: 20240122
  Transmission Date: 20240410
  Serious: No
  Sender: FDA-Public Use
  Company Number: US-VERTEX PHARMACEUTICALS-2024-000744

PATIENT
  Age: 27 Year

DRUGS (2)
  1. TRIKAFTA [Suspect]
     Active Substance: ELEXACAFTOR\IVACAFTOR\TEZACAFTOR
     Indication: Cystic fibrosis
     Dosage: UNK
     Route: 048
  2. TRIKAFTA [Suspect]
     Active Substance: ELEXACAFTOR\IVACAFTOR\TEZACAFTOR
     Dosage: 1 YELLOW PILL PER DAY
     Route: 048

REACTIONS (4)
  - Mental disorder [Unknown]
  - Pulmonary pain [Not Recovered/Not Resolved]
  - Productive cough [Not Recovered/Not Resolved]
  - Hepatic enzyme abnormal [Unknown]
